FAERS Safety Report 6701198-2 (Version None)
Quarter: 2010Q2

REPORT INFORMATION
  Report Type: 
  Country: None (occurrence: None)
  Receive Date: 20100428
  Receipt Date: 20100428
  Transmission Date: 20101027
  Serious: Yes (Hospitalization)
  Sender: FDA-Public Use
  Company Number: None

PATIENT
  Sex: Female
  Weight: 63.5036 kg

DRUGS (1)
  1. FLUTICASONE PROPIONATE [Suspect]
     Indication: MULTIPLE ALLERGIES
     Dosage: 2 SPRAYS EVERY DAY 1 TIME
     Dates: end: 20100420

REACTIONS (6)
  - DIZZINESS [None]
  - HEADACHE [None]
  - METAMORPHOPSIA [None]
  - PRODUCT QUALITY ISSUE [None]
  - VERTIGO [None]
  - VISION BLURRED [None]
